FAERS Safety Report 12546646 (Version 1)
Quarter: 2016Q3

REPORT INFORMATION
  Report Type: Report from Study
  Country: US (occurrence: US)
  Receive Date: 20160711
  Receipt Date: 20160711
  Transmission Date: 20161109
  Serious: Yes (Other)
  Sender: FDA-Public Use
  Company Number: US-ABBVIE-16K-163-1610433-00

PATIENT
  Sex: Female
  Weight: 52.21 kg

DRUGS (14)
  1. GABAPENTIN. [Concomitant]
     Active Substance: GABAPENTIN
     Indication: NEURALGIA
  2. PREDNISONE. [Suspect]
     Active Substance: PREDNISONE
     Indication: RASH
     Route: 065
  3. PRAVASTATIN. [Concomitant]
     Active Substance: PRAVASTATIN
     Indication: HYPERCHOLESTEROLAEMIA
  4. MORPHINE [Concomitant]
     Active Substance: MORPHINE
     Indication: SPINAL FUSION SURGERY
  5. ACYCLOVIR. [Concomitant]
     Active Substance: ACYCLOVIR
     Indication: GENITAL HERPES
  6. HUMIRA [Suspect]
     Active Substance: ADALIMUMAB
     Indication: PSORIATIC ARTHROPATHY
     Route: 058
     Dates: start: 20150928, end: 20160624
  7. METHOTREXATE. [Suspect]
     Active Substance: METHOTREXATE
     Indication: PSORIATIC ARTHROPATHY
     Route: 065
     Dates: start: 2001, end: 20160617
  8. TRAZODONE [Concomitant]
     Active Substance: TRAZODONE HYDROCHLORIDE
     Indication: INSOMNIA
  9. XANAX [Concomitant]
     Active Substance: ALPRAZOLAM
     Indication: ANXIETY
  10. HUMIRA [Suspect]
     Active Substance: ADALIMUMAB
     Indication: PSORIASIS
  11. HUMIRA [Suspect]
     Active Substance: ADALIMUMAB
     Indication: RHEUMATOID ARTHRITIS
  12. CELEXA [Concomitant]
     Active Substance: CITALOPRAM HYDROBROMIDE
     Indication: ANXIETY
  13. ESTRADIOL. [Concomitant]
     Active Substance: ESTRADIOL
     Indication: HORMONE REPLACEMENT THERAPY
  14. PREDNISONE. [Suspect]
     Active Substance: PREDNISONE
     Route: 065
     Dates: start: 2016

REACTIONS (13)
  - Candida infection [Recovered/Resolved]
  - Night sweats [Recovered/Resolved]
  - Vision blurred [Not Recovered/Not Resolved]
  - Muscular weakness [Not Recovered/Not Resolved]
  - Rash generalised [Not Recovered/Not Resolved]
  - Neck injury [Not Recovered/Not Resolved]
  - Lung disorder [Not Recovered/Not Resolved]
  - Choking [Recovered/Resolved]
  - Lung neoplasm malignant [Unknown]
  - Intervertebral disc protrusion [Not Recovered/Not Resolved]
  - Urinary tract infection [Recovered/Resolved]
  - Flank pain [Recovered/Resolved]
  - Conjunctivitis [Not Recovered/Not Resolved]

NARRATIVE: CASE EVENT DATE: 2016
